FAERS Safety Report 10261887 (Version 1)
Quarter: 2014Q2

REPORT INFORMATION
  Report Type: Spontaneous
  Country: US (occurrence: US)
  Receive Date: 20140626
  Receipt Date: 20140626
  Transmission Date: 20141212
  Serious: Yes (Other)
  Sender: FDA-Public Use
  Company Number: US-BAYER-2014-094045

PATIENT
  Age: 65 Year
  Sex: Male

DRUGS (5)
  1. SORAFENIB (RAF KINASE INHIBITOR) [Suspect]
     Indication: ACUTE MYELOMONOCYTIC LEUKAEMIA
     Dosage: 400 MG, BID
     Route: 048
  2. SORAFENIB (RAF KINASE INHIBITOR) [Suspect]
     Indication: CHRONIC LYMPHOCYTIC LEUKAEMIA
     Dosage: 200 MG, BID
     Route: 048
  3. AZACITIDINE [Concomitant]
     Indication: CHRONIC MYELOMONOCYTIC LEUKAEMIA
     Dosage: 100 MG, DAILY
     Route: 042
  4. AZACITIDINE [Concomitant]
     Indication: CHRONIC LYMPHOCYTIC LEUKAEMIA
  5. AZACITIDINE [Concomitant]
     Indication: ACUTE MYELOMONOCYTIC LEUKAEMIA

REACTIONS (3)
  - Anaemia [Recovered/Resolved]
  - Neutropenia [None]
  - Off label use [None]
